FAERS Safety Report 9277140 (Version 1)
Quarter: 2013Q2

REPORT INFORMATION
  Report Type: Spontaneous
  Country: US (occurrence: US)
  Receive Date: 20130508
  Receipt Date: 20130508
  Transmission Date: 20140414
  Serious: Yes (Disabling)
  Sender: FDA-Public Use
  Company Number: US-MYLANLABS-2013S1009206

PATIENT
  Age: 40 Year
  Sex: 0

DRUGS (3)
  1. ALLOPURINOL [Suspect]
     Route: 065
  2. COLCHICINE [Suspect]
     Route: 065
  3. ERYTHROMYCIN [Suspect]
     Route: 065

REACTIONS (3)
  - Stevens-Johnson syndrome [Unknown]
  - Toxic epidermal necrolysis [Unknown]
  - Blindness [Unknown]
